FAERS Safety Report 9900285 (Version 1)
Quarter: 2014Q1

REPORT INFORMATION
  Report Type: Spontaneous
  Country: US (occurrence: US)
  Receive Date: 20140215
  Receipt Date: 20140215
  Transmission Date: 20141002
  Serious: Yes (Other)
  Sender: FDA-Public Use
  Company Number: US-AMGEN-USASP2014010471

PATIENT
  Sex: Female

DRUGS (3)
  1. PROLIA [Suspect]
     Indication: OSTEOPOROSIS POSTMENOPAUSAL
     Dosage: UNK
     Route: 065
  2. PREDNISONE [Concomitant]
  3. OXYCODONE [Concomitant]

REACTIONS (13)
  - Loss of consciousness [Unknown]
  - Suicidal ideation [Unknown]
  - Spinal column injury [Unknown]
  - Swollen tongue [Unknown]
  - Lip swelling [Unknown]
  - Glossodynia [Unknown]
  - Lip pain [Unknown]
  - Pain in jaw [Unknown]
  - Toothache [Unknown]
  - Ear pain [Unknown]
  - Headache [Unknown]
  - Ear infection [Unknown]
  - Arthralgia [Unknown]
